FAERS Safety Report 24690169 (Version 1)
Quarter: 2024Q4

REPORT INFORMATION
  Report Type: Spontaneous
  Country: US (occurrence: None)
  Receive Date: 20241202
  Receipt Date: 20241202
  Transmission Date: 20250115
  Serious: Yes (Hospitalization)
  Sender: Public
  Company Number: None

PATIENT
  Sex: Female
  Weight: 58.51 kg

DRUGS (3)
  1. WINREVAIR [Suspect]
     Active Substance: SOTATERCEPT-CSRK
     Dosage: OTHER FREQUENCY : ONCEEVERY3WEEKS;?
     Route: 058
     Dates: start: 202406
  2. WINREVAIR [Concomitant]
     Active Substance: SOTATERCEPT-CSRK
  3. UPTRAVI [Concomitant]
     Active Substance: SELEXIPAG

REACTIONS (4)
  - Sepsis [None]
  - Oedema peripheral [None]
  - Dialysis [None]
  - Intentional dose omission [None]
